FAERS Safety Report 8540947-8 (Version None)
Quarter: 2012Q3

REPORT INFORMATION
  Report Type: 
  Country: None (occurrence: None)
  Receive Date: 20120716
  Receipt Date: 20120705
  Transmission Date: 20120928
  Serious: Yes (Other)
  Sender: FDA-Public Use
  Company Number: ACO_30978_2012

PATIENT
  Age: 60 Year
  Sex: Female
  Weight: 111.1 kg

DRUGS (6)
  1. SYNTHROID [Concomitant]
  2. TAMIFLUR (OSEL TAMIVIR PHOSPHATE) [Concomitant]
  3. AVONEX [Concomitant]
  4. TRAMADOL HCL [Concomitant]
  5. AMPYRA [Suspect]
     Indication: GAIT DISTURBANCE
     Dosage: 10 MG, BID, ORAL
     Route: 048
     Dates: start: 20120601, end: 20120601
  6. AMITIZA [Concomitant]

REACTIONS (7)
  - VISION BLURRED [None]
  - CONSTIPATION [None]
  - BLINDNESS TRANSIENT [None]
  - HYPOAESTHESIA [None]
  - FALL [None]
  - DERMATITIS BULLOUS [None]
  - ABDOMINAL PAIN [None]
